FAERS Safety Report 6584821-5 (Version None)
Quarter: 2010Q1

REPORT INFORMATION
  Report Type: 
  Country: None (occurrence: None)
  Receive Date: 20100217
  Receipt Date: 20100208
  Transmission Date: 20100710
  Serious: Yes (Hospitalization, Other)
  Sender: FDA-Public Use
  Company Number: CA-JNJFOC-20100204297

PATIENT
  Age: 33 Year
  Sex: Female

DRUGS (4)
  1. RISPERDAL [Suspect]
     Indication: MANIA
     Dosage: 0.25MG - 0.5MG
     Route: 065
  2. RISPERDAL [Suspect]
     Indication: ANXIETY
     Dosage: 0.25MG - 0.5MG
     Route: 065
  3. INVEGA [Suspect]
     Indication: MANIA
     Route: 048
  4. INVEGA [Suspect]
     Indication: ANXIETY
     Route: 048

REACTIONS (3)
  - BLOOD PROLACTIN INCREASED [None]
  - MENORRHAGIA [None]
  - UTERINE LEIOMYOMA [None]
